FAERS Safety Report 11307168 (Version 2)
Quarter: 2015Q3

REPORT INFORMATION
  Report Type: Spontaneous
  Country: FR (occurrence: FR)
  Receive Date: 20150723
  Receipt Date: 20150805
  Transmission Date: 20151125
  Serious: Yes (Life-Threatening, Hospitalization, Congenital Anomaly)
  Sender: FDA-Public Use
  Company Number: FR-ABBVIE-15P-056-1432152-00

PATIENT
  Sex: Female
  Weight: 1.94 kg

DRUGS (8)
  1. CREON [Suspect]
     Active Substance: PANCRELIPASE AMYLASE\PANCRELIPASE LIPASE\PANCRELIPASE PROTEASE
     Indication: MATERNAL EXPOSURE TIMING UNSPECIFIED
     Route: 064
  2. AUGMENTIN [Suspect]
     Active Substance: AMOXICILLIN\CLAVULANATE POTASSIUM
     Indication: MATERNAL EXPOSURE TIMING UNSPECIFIED
     Route: 064
  3. VFEND [Suspect]
     Active Substance: VORICONAZOLE
     Indication: MATERNAL EXPOSURE TIMING UNSPECIFIED
     Route: 064
  4. UVEDOSE [Suspect]
     Active Substance: CHOLECALCIFEROL
     Indication: MATERNAL EXPOSURE TIMING UNSPECIFIED
     Route: 064
  5. VITAMIN A [Suspect]
     Active Substance: VITAMIN A
     Indication: MATERNAL EXPOSURE TIMING UNSPECIFIED
     Route: 064
  6. PULMOZYME [Suspect]
     Active Substance: DORNASE ALFA
     Indication: MATERNAL EXPOSURE TIMING UNSPECIFIED
     Route: 064
  7. SPORANOX [Suspect]
     Active Substance: ITRACONAZOLE\SODIUM CHLORIDE
     Indication: MATERNAL EXPOSURE TIMING UNSPECIFIED
     Route: 064
  8. TOCO [Suspect]
     Active Substance: UNSPECIFIED INGREDIENT
     Indication: MATERNAL EXPOSURE TIMING UNSPECIFIED
     Route: 064

REACTIONS (6)
  - Intestinal perforation [Recovered/Resolved]
  - Inappropriate antidiuretic hormone secretion [Recovered/Resolved]
  - Cytogenetic abnormality [Not Recovered/Not Resolved]
  - Premature baby [Unknown]
  - Intraventricular haemorrhage [Unknown]
  - Foetal exposure during pregnancy [Unknown]

NARRATIVE: CASE EVENT DATE: 2013
